FAERS Safety Report 5003925-1 (Version None)
Quarter: 2006Q2

REPORT INFORMATION
  Report Type: 
  Country: None (occurrence: None)
  Receive Date: 20060517
  Receipt Date: 20060508
  Transmission Date: 20061013
  Serious: Yes (Life-Threatening, Hospitalization, Other)
  Sender: FDA-Public Use
  Company Number: US-JNJFOC-20060401477

PATIENT
  Sex: Male
  Weight: 86.64 kg

DRUGS (22)
  1. REMICADE [Suspect]
     Route: 042
  2. REMICADE [Suspect]
     Indication: CROHN'S DISEASE
     Route: 042
  3. COUMADIN [Suspect]
     Indication: DRUG USE FOR UNKNOWN INDICATION
     Dosage: RECENTLY STARTED
  4. CREON [Concomitant]
  5. BENTYL [Concomitant]
  6. ZELNORM [Concomitant]
  7. FLONASE [Concomitant]
  8. MINIPRESS [Concomitant]
  9. GLUCOSAMINE [Concomitant]
  10. IMURAN [Concomitant]
  11. ASPIRIN [Concomitant]
  12. PRAVACHOL [Concomitant]
  13. PROCTOFOAM [Concomitant]
  14. SKELAXIN [Concomitant]
  15. BENADRYL [Concomitant]
  16. LIDODERM [Concomitant]
  17. LORTAB [Concomitant]
  18. LORTAB [Concomitant]
  19. ZOLOFT [Concomitant]
  20. SPIRIVA [Concomitant]
  21. LYRICA [Concomitant]
  22. ATIVAN [Concomitant]

REACTIONS (2)
  - HAEMORRHAGE [None]
  - INTERNATIONAL NORMALISED RATIO INCREASED [None]
